FAERS Safety Report 15211226 (Version 1)
Quarter: 2018Q3

REPORT INFORMATION
  Report Type: Spontaneous
  Country: US (occurrence: US)
  Receive Date: 20180630
  Receipt Date: 20180630
  Transmission Date: 20181010
  Serious: No
  Sender: FDA-Public Use
  Company Number: None

PATIENT
  Age: 29 Year
  Sex: Female

DRUGS (2)
  1. LEVOTHYROXINE SODIUM. [Suspect]
     Active Substance: LEVOTHYROXINE SODIUM
     Indication: HYPOTHYROIDISM
  2. LEVONORGESTREL BIRTH CONTROL [Concomitant]

REACTIONS (5)
  - Feeling abnormal [None]
  - Crying [None]
  - Fear of death [None]
  - Erythema [None]
  - Anxiety [None]

NARRATIVE: CASE EVENT DATE: 20180624
